FAERS Safety Report 6806494-6 (Version None)
Quarter: 2010Q2

REPORT INFORMATION
  Report Type: 
  Country: None (occurrence: None)
  Receive Date: 20100629
  Receipt Date: 20080423
  Transmission Date: 20101027
  Serious: No
  Sender: FDA-Public Use
  Company Number: US-PFIZER INC-2008017133

PATIENT
  Sex: Female
  Weight: 51.818 kg

DRUGS (3)
  1. ALPRAZOLAM [Suspect]
     Indication: PANIC ATTACK
     Dates: start: 20010101
  2. THYROID TAB [Concomitant]
  3. ZOLOFT [Concomitant]

REACTIONS (1)
  - WITHDRAWAL SYNDROME [None]
